FAERS Safety Report 8216606-8 (Version None)
Quarter: 2012Q1

REPORT INFORMATION
  Report Type: 
  Country: None (occurrence: None)
  Receive Date: 20120316
  Receipt Date: 20120302
  Transmission Date: 20120608
  Serious: Yes (Other)
  Sender: FDA-Public Use
  Company Number: CHPA2012US004478

PATIENT
  Age: 59 Year
  Sex: Female

DRUGS (11)
  1. NICOTINE [Suspect]
     Indication: SMOKING CESSATION THERAPY
     Dosage: 21 MG, QD
     Route: 062
     Dates: start: 20120203, end: 20120217
  2. LEVOTHYROXINE SODIUM [Concomitant]
  3. FAMOTIDINE [Concomitant]
  4. CARBAMAZEPINE [Concomitant]
  5. ADVAIR DISKUS 100/50 [Concomitant]
  6. DRUG THERAPY NOS [Concomitant]
  7. VENTOLIN [Concomitant]
  8. OXYBUTYNIN [Concomitant]
  9. DICLOFENAC SODIUM [Concomitant]
  10. GABAPENTIN [Concomitant]
  11. ASACOL [Concomitant]

REACTIONS (1)
  - ASTHMA [None]
